FAERS Safety Report 8185598 (Version 2)
Quarter: 2012Q4

REPORT INFORMATION
  Report Type: 
  Country: US (occurrence: US)
  Receive Date: 20111018
  Receipt Date: 20121115
  Transmission Date: 20130627
  Serious: No
  Sender: FDA-Public Use
  Company Number: US-ASTRAZENECA-2010SE60544

PATIENT
  Age: 66 Year
  Sex: Male
  Weight: 86.2 kg

DRUGS (1)
  1. SYMBICORT PMDI [Suspect]
     Indication: ASTHMA
     Dosage: 320 MCG TWO TIMES A DAY
     Route: 055
     Dates: start: 201006

REACTIONS (3)
  - Breath odour [Unknown]
  - Nasopharyngitis [Unknown]
  - Intentional drug misuse [Unknown]
